FAERS Safety Report 15703442 (Version 1)
Quarter: 2018Q4

REPORT INFORMATION
  Report Type: Spontaneous
  Country: US (occurrence: US)
  Receive Date: 20181209
  Receipt Date: 20181209
  Transmission Date: 20190205
  Serious: Yes (Disabling)
  Sender: FDA-Public Use
  Company Number: None

PATIENT
  Age: 43 Year
  Sex: Female
  Weight: 60.75 kg

DRUGS (5)
  1. IC CITALOPRAM HBR 20 MG [Suspect]
     Active Substance: CITALOPRAM HYDROBROMIDE
     Indication: DEPRESSION
     Dosage: ?          QUANTITY:30 TABLET(S);OTHER FREQUENCY:1/2 TAB AT NIGHT;?
     Route: 048
     Dates: start: 20181203, end: 20181208
  2. VITAMIN B12 [Concomitant]
     Active Substance: CYANOCOBALAMIN
  3. DAILY MULTIVITAMIN (NO IRON) [Concomitant]
  4. NEPETA CATARIA (CATNIP) [Concomitant]
  5. VITAMIN D3 [Concomitant]
     Active Substance: CHOLECALCIFEROL

REACTIONS (6)
  - Mania [None]
  - Visual impairment [None]
  - Decreased appetite [None]
  - Back pain [None]
  - Sleep disorder [None]
  - Nausea [None]

NARRATIVE: CASE EVENT DATE: 20181209
